FAERS Safety Report 8074013-5 (Version None)
Quarter: 2012Q1

REPORT INFORMATION
  Report Type: 
  Country: None (occurrence: None)
  Receive Date: 20120126
  Receipt Date: 20120118
  Transmission Date: 20120608
  Serious: Yes (Hospitalization, Other)
  Sender: FDA-Public Use
  Company Number: IE-ABBOTT-12P-229-0893153-00

PATIENT
  Age: 17 Year
  Sex: Female

DRUGS (6)
  1. LAMOTRIGINE [Concomitant]
     Indication: PRODUCT USED FOR UNKNOWN INDICATION
  2. VALPROATE SODIUM [Suspect]
     Route: 048
     Dates: start: 20120112, end: 20120116
  3. VALPROATE SODIUM [Suspect]
     Route: 048
     Dates: start: 20120116
  4. VALPROATE SODIUM [Suspect]
     Route: 048
     Dates: start: 20111201, end: 20120109
  5. VALPROATE SODIUM [Suspect]
     Indication: EPILEPSY
     Route: 048
  6. VALPROATE SODIUM [Suspect]
     Route: 048
     Dates: start: 20120109, end: 20120111

REACTIONS (9)
  - CONVULSION [None]
  - LOSS OF CONSCIOUSNESS [None]
  - DRUG INEFFECTIVE [None]
  - FATIGUE [None]
  - MALAISE [None]
  - HEADACHE [None]
  - DRUG LEVEL INCREASED [None]
  - FEELING ABNORMAL [None]
  - VOMITING [None]
